FAERS Safety Report 6513948-9 (Version None)
Quarter: 2009Q4

REPORT INFORMATION
  Report Type: 
  Country: None (occurrence: None)
  Receive Date: 20091223
  Receipt Date: 20091210
  Transmission Date: 20100525
  Serious: Yes (Death)
  Sender: FDA-Public Use
  Company Number: US-RANBAXY-2009US-28608

PATIENT

DRUGS (2)
  1. ISOTRETINOIN [Suspect]
     Indication: ACNE
     Dosage: 30 MG, BID
     Route: 048
     Dates: start: 20090911
  2. AMNESTEEM [Suspect]
     Indication: ACNE
     Dosage: 40 MG, QD
     Route: 048
     Dates: start: 20090814

REACTIONS (2)
  - COMPLETED SUICIDE [None]
  - DRY SKIN [None]
